FAERS Safety Report 13114896 (Version 3)
Quarter: 2017Q1

REPORT INFORMATION
  Report Type: Spontaneous
  Country: US (occurrence: US)
  Receive Date: 20170113
  Receipt Date: 20170202
  Transmission Date: 20170428
  Serious: Yes (Hospitalization, Other)
  Sender: FDA-Public Use
  Company Number: US-SAOL THERAPEUTICS-2017SAO00045

PATIENT
  Age: 50 Year
  Sex: Male

DRUGS (2)
  1. BACLOFEN. [Suspect]
     Active Substance: BACLOFEN
     Indication: MUSCLE SPASTICITY
     Route: 037
  2. MORPHINE [Suspect]
     Active Substance: MORPHINE
     Route: 037

REACTIONS (12)
  - Drug withdrawal syndrome [Recovered/Resolved]
  - Device alarm issue [Recovered/Resolved]
  - Treatment noncompliance [Unknown]
  - Malaise [Recovered/Resolved]
  - Device damage [Recovered/Resolved]
  - Abdominal discomfort [Recovered/Resolved]
  - Device infusion issue [Recovered/Resolved]
  - Polycythaemia vera [Unknown]
  - Dystonia [Unknown]
  - Drug dose omission [Recovered/Resolved]
  - Blood glucose increased [Unknown]
  - Dizziness [Recovered/Resolved]

NARRATIVE: CASE EVENT DATE: 2003
